FAERS Safety Report 7517470-2 (Version None)
Quarter: 2011Q2

REPORT INFORMATION
  Report Type: 
  Country: None (occurrence: None)
  Receive Date: 20110601
  Receipt Date: 20110525
  Transmission Date: 20111010
  Serious: Yes (Other)
  Sender: FDA-Public Use
  Company Number: JP-PFIZER INC-2011055863

PATIENT
  Age: 29 Year
  Sex: Male

DRUGS (11)
  1. AZULFIDINE [Suspect]
     Indication: RHEUMATOID ARTHRITIS
     Dosage: 1000 MG/DAY
     Route: 048
     Dates: start: 20101113, end: 20101119
  2. AZULFIDINE [Suspect]
     Dosage: 500 MG, 2X/DAY
     Route: 048
     Dates: start: 20110205, end: 20110304
  3. LOXONIN [Concomitant]
     Indication: RHEUMATOID ARTHRITIS
     Dosage: 1 DF, 3X/DAY
     Route: 048
     Dates: start: 20101106, end: 20101112
  4. AZULFIDINE [Suspect]
     Dosage: 500 MG, 2X/DAY
     Route: 048
     Dates: start: 20110312, end: 20110318
  5. DASEN [Concomitant]
     Dosage: 1 DF, 3X/DAY
     Route: 048
     Dates: start: 20101127, end: 20101210
  6. LOXONIN [Concomitant]
     Dosage: 1 DF, 3X/DAY
     Route: 048
     Dates: start: 20101127, end: 20101210
  7. DASEN [Concomitant]
     Dosage: 1 DF, 3X/DAY
     Route: 048
     Dates: start: 20110205, end: 20110218
  8. LOXONIN [Concomitant]
     Dosage: 1 DF, 3X/DAY
     Route: 048
     Dates: start: 20110205, end: 20110218
  9. LOXONIN [Concomitant]
     Dosage: 1 DF, 3X/DAY
     Route: 048
     Dates: start: 20110312, end: 20110318
  10. AZULFIDINE [Suspect]
     Dosage: 500 MG, 2X/DAY
     Route: 048
     Dates: start: 20101127, end: 20101210
  11. DASEN [Concomitant]
     Indication: RHEUMATOID ARTHRITIS
     Dosage: 1 DF, 3X/DAY
     Route: 048
     Dates: start: 20101106, end: 20101112

REACTIONS (2)
  - HAEMATOCHEZIA [None]
  - ABNORMAL SENSATION IN EYE [None]
